FAERS Safety Report 8250870-4 (Version None)
Quarter: 2012Q2

REPORT INFORMATION
  Report Type: 
  Country: None (occurrence: None)
  Receive Date: 20120402
  Receipt Date: 20120327
  Transmission Date: 20120825
  Serious: Yes (Other)
  Sender: FDA-Public Use
  Company Number: PHHY2012FR020603

PATIENT
  Sex: Male
  Weight: 83 kg

DRUGS (4)
  1. ONBREZ [Suspect]
     Indication: CHRONIC OBSTRUCTIVE PULMONARY DISEASE
     Dosage: 150 UG, DAILY
     Dates: start: 20111222, end: 20120306
  2. ATORVASTATIN [Concomitant]
     Indication: MYOCARDIAL INFARCTION
     Dosage: 80 MG, DAILY
     Route: 048
     Dates: start: 20030101
  3. ATENOLOL [Concomitant]
     Indication: MYOCARDIAL INFARCTION
     Dosage: 50 MG, DAILY
     Route: 048
     Dates: start: 20030101
  4. PLAVIX [Concomitant]
     Indication: MYOCARDIAL INFARCTION
     Dosage: 75 MG, DAILY
     Route: 048
     Dates: start: 20030101

REACTIONS (5)
  - MALAISE [None]
  - BRONCHOSPASM PARADOXICAL [None]
  - FALL [None]
  - VOMITING [None]
  - LOSS OF CONSCIOUSNESS [None]
